FAERS Safety Report 10420160 (Version 1)
Quarter: 2014Q3

REPORT INFORMATION
  Report Type: Report from Study
  Country: US (occurrence: None)
  Receive Date: 20140804
  Receipt Date: 20140804
  Transmission Date: 20150326
  Serious: Yes (Hospitalization)
  Sender: FDA-Public Use
  Company Number: 2012US006317

PATIENT
  Age: 73 Year
  Sex: Male
  Weight: 121.3 kg

DRUGS (8)
  1. GLASSIA [Suspect]
     Active Substance: .ALPHA.1-PROTEINASE INHIBITOR HUMAN
     Indication: ALPHA-1 ANTI-TRYPSIN DEFICIENCY
     Route: 042
     Dates: start: 201110
  2. CARVEDILOL. [Concomitant]
     Active Substance: CARVEDILOL
  3. COUMADIN [Concomitant]
     Active Substance: WARFARIN SODIUM
  4. OXYGEN (OXYGEN) [Concomitant]
     Active Substance: OXYGEN
  5. BENADRYL [Suspect]
     Active Substance: DIPHENHYDRAMINE HYDROCHLORIDE
     Indication: ALPHA-1 ANTI-TRYPSIN DEFICIENCY
     Route: 048
     Dates: start: 201110
  6. EMLA [Concomitant]
     Active Substance: LIDOCAINE\PRILOCAINE
  7. CPAP [Concomitant]
     Active Substance: DEVICE
  8. IMMUNOGLOBULIN [Concomitant]
     Active Substance: HUMAN IMMUNOGLOBULIN G

REACTIONS (5)
  - Tooth repair [None]
  - Chronic obstructive pulmonary disease [None]
  - Fatigue [None]
  - Feeling jittery [None]
  - Pneumonia [None]

NARRATIVE: CASE EVENT DATE: 20111103
